FAERS Safety Report 14339477 (Version 4)
Quarter: 2018Q1

REPORT INFORMATION
  Report Type: Spontaneous
  Country: DE (occurrence: DE)
  Receive Date: 20171230
  Receipt Date: 20180329
  Transmission Date: 20180509
  Serious: Yes (Other)
  Sender: FDA-Public Use
  Company Number: DE-AUROBINDO-AUR-APL-2017-48266

PATIENT
  Age: 58 Year
  Sex: Male
  Weight: 85 kg

DRUGS (6)
  1. RALTEGRAVIR. [Interacting]
     Active Substance: RALTEGRAVIR
     Indication: HIV INFECTION
     Dosage: 400 MG, BID
     Route: 048
     Dates: start: 200602
  2. CEFUROXIME. [Suspect]
     Active Substance: CEFUROXIME
     Indication: ABSCESS
     Dosage: 500 MG, TWO TIMES A DAY
     Route: 048
     Dates: start: 201706, end: 20170904
  3. RITONAVIR. [Interacting]
     Active Substance: RITONAVIR
     Indication: HIV INFECTION
     Dosage: DAILY DOSE: 100 MG MILLGRAM(S) EVERY 2 DAYS
     Route: 048
     Dates: start: 200602
  4. LOPINAVIR [Interacting]
     Active Substance: LOPINAVIR
     Indication: HIV INFECTION
     Dosage: 200 MG, BID (FOR EVERY TWO DAYS)
     Route: 048
     Dates: start: 200602
  5. CEFUROXIME. [Interacting]
     Active Substance: CEFUROXIME
     Dosage: 1000 MG, QD (500 MG, BID)
     Route: 048
     Dates: start: 20170601, end: 20170904
  6. RALTEGRAVIR. [Interacting]
     Active Substance: RALTEGRAVIR
     Dosage: 2 SEPERATED DOSES DAILY DOSE: 1000 MG MILLGRAM(S) EVERY DAYS
     Route: 048
     Dates: start: 200602

REACTIONS (3)
  - Blood HIV RNA increased [Unknown]
  - Drug effect decreased [Unknown]
  - Drug interaction [Unknown]

NARRATIVE: CASE EVENT DATE: 20170809
